FAERS Safety Report 4283171-X (Version None)
Quarter: 2004Q1

REPORT INFORMATION
  Report Type: 
  Country: None (occurrence: None)
  Receive Date: 20040121
  Receipt Date: 20040106
  Transmission Date: 20041129
  Serious: Yes (Hospitalization)
  Sender: FDA-Public Use
  Company Number: 200408911

PATIENT
  Age: 48 Year
  Sex: Female
  Weight: 44.4525 kg

DRUGS (26)
  1. GAMMAR-P I.V. [Suspect]
     Indication: HYPOGAMMAGLOBULINAEMIA
     Dosage: 40 G Q1MO IV
     Route: 042
     Dates: start: 20030827
  2. GAMMAR-P I.V. [Suspect]
     Indication: IMMUNODEFICIENCY COMMON VARIABLE
     Dosage: 40 G Q1MO IV
     Route: 042
     Dates: start: 20030827
  3. GAMMAR-P I.V. [Suspect]
     Dosage: SEE IMAGE
     Route: 042
     Dates: start: 20030827
  4. GAMMAR-P I.V. [Suspect]
     Dosage: SEE IMAGE
     Route: 042
     Dates: start: 20030918, end: 20031210
  5. ZOLOFT [Concomitant]
  6. DURAGESIC [Concomitant]
  7. VICODIN [Concomitant]
  8. SINGULAIR [Concomitant]
  9. PREDNISONE [Concomitant]
  10. COMPAZINE [Concomitant]
  11. LIBRAX [Concomitant]
  12. XANAX [Concomitant]
  13. FLEXERIL [Concomitant]
  14. KENALOG [Concomitant]
  15. PREVACID [Concomitant]
  16. PREMARIN [Concomitant]
  17. LEVBID [Concomitant]
  18. NAPROSYN [Concomitant]
  19. CLONOPIN [Concomitant]
  20. ALLEGRA [Concomitant]
  21. HYOSCYAMINE [Concomitant]
  22. NASAL SALINE [Concomitant]
  23. ZYRTEC [Concomitant]
  24. K-DUR 10 [Concomitant]
  25. FEOSOL [Concomitant]
  26. LASIX [Concomitant]

REACTIONS (6)
  - DERMATITIS [None]
  - PHARMACEUTICAL PRODUCT COMPLAINT [None]
  - PNEUMONIA [None]
  - PRURITUS [None]
  - RASH [None]
  - URTICARIA [None]
